FAERS Safety Report 4348092-2 (Version None)
Quarter: 2004Q1

REPORT INFORMATION
  Report Type: 
  Country: None (occurrence: None)
  Receive Date: 20040325
  Receipt Date: 20040209
  Transmission Date: 20041129
  Serious: No
  Sender: FDA-Public Use
  Company Number: USA040258836

PATIENT
  Age: 81 Year
  Sex: Female

DRUGS (3)
  1. FORTEO [Suspect]
     Indication: GASTRIC DISORDER
     Dates: start: 20031001, end: 20031001
  2. PREDNISONE [Concomitant]
  3. ATENOLOL [Concomitant]

REACTIONS (3)
  - ANAEMIA [None]
  - PHARYNGOLARYNGEAL PAIN [None]
  - PNEUMONIA [None]
